FAERS Safety Report 24940698 (Version 1)
Quarter: 2025Q1

REPORT INFORMATION
  Report Type: Spontaneous
  Country: DE (occurrence: DE)
  Receive Date: 20250207
  Receipt Date: 20250207
  Transmission Date: 20250408
  Serious: Yes (Hospitalization, Other)
  Sender: SOLARIS PHARMA CORPORATION
  Company Number: DE-SPC-000559

PATIENT
  Age: 65 Year
  Sex: Male

DRUGS (2)
  1. CLINDAMYCIN [Suspect]
     Active Substance: CLINDAMYCIN
     Indication: Necrotising fasciitis streptococcal
     Route: 042
  2. PENICILLIN [Suspect]
     Active Substance: PENICILLIN
     Indication: Necrotising fasciitis streptococcal
     Route: 042

REACTIONS (2)
  - Superinfection bacterial [Unknown]
  - Product use in unapproved indication [Unknown]
